FAERS Safety Report 10072050 (Version 2)
Quarter: 2014Q2

REPORT INFORMATION
  Report Type: Spontaneous
  Country: US (occurrence: US)
  Receive Date: 20140411
  Receipt Date: 20140417
  Transmission Date: 20141212
  Serious: No
  Sender: FDA-Public Use
  Company Number: US-BAYER-2014-049167

PATIENT
  Age: 42 Year
  Sex: Female

DRUGS (1)
  1. BETASERON [Suspect]
     Indication: MULTIPLE SCLEROSIS
     Dosage: 0.3 MG, UNK
     Route: 058
     Dates: start: 2010

REACTIONS (10)
  - Hypoaesthesia [None]
  - Chest pain [None]
  - Musculoskeletal pain [None]
  - Anxiety [None]
  - Hyperhidrosis [None]
  - Pain in jaw [None]
  - Dissociation [None]
  - Dyspnoea [None]
  - Hypoaesthesia [None]
  - Muscular weakness [None]
